FAERS Safety Report 7291412-X (Version None)
Quarter: 2011Q1

REPORT INFORMATION
  Report Type: 
  Country: None (occurrence: None)
  Receive Date: 20110214
  Receipt Date: 20110207
  Transmission Date: 20110831
  Serious: Yes (Hospitalization)
  Sender: FDA-Public Use
  Company Number: B0699242A

PATIENT
  Age: 57 Year
  Sex: Female

DRUGS (2)
  1. AVANDAMET [Suspect]
     Route: 048
     Dates: start: 20031201, end: 20041201
  2. AVANDARYL [Suspect]
     Route: 048
     Dates: start: 20070401, end: 20070901

REACTIONS (2)
  - PALPITATIONS [None]
  - CARDIAC FAILURE CONGESTIVE [None]
